FAERS Safety Report 11220392 (Version 1)
Quarter: 2015Q2

REPORT INFORMATION
  Report Type: Spontaneous
  Country: US (occurrence: None)
  Receive Date: 20150625
  Receipt Date: 20150625
  Transmission Date: 20150821
  Serious: No
  Sender: FDA-Public Use
  Company Number: None

PATIENT

DRUGS (2)
  1. CEFAZOLIN SODIUM CEFAZOLIN [Suspect]
     Active Substance: CEFAZOLIN SODIUM
     Dosage: DOSAGE FORM: INJECTABLE  ADM ROUTE: INJECTION  STRENGTH: 10 GRAMS?TYPE: VIAL
  2. CEFOTAXIME SODIUM CEFOTAXIME [Suspect]
     Active Substance: CEFOTAXIME SODIUM
     Dosage: DOSAGE FORM: INJECTABLE  ADM ROUTE: IV USE  STRENGTH: 10 GRAM ?TYPE: VIAL
     Route: 042

REACTIONS (2)
  - Circumstance or information capable of leading to medication error [None]
  - Product name confusion [None]
